FAERS Safety Report 23781887 (Version 1)
Quarter: 2024Q2

REPORT INFORMATION
  Report Type: Report from Study
  Country: US (occurrence: US)
  Receive Date: 20240425
  Receipt Date: 20240425
  Transmission Date: 20240715
  Serious: Yes (Other)
  Sender: FDA-Public Use
  Company Number: US-ABBVIE-5731929

PATIENT
  Sex: Female

DRUGS (1)
  1. SKYRIZI [Suspect]
     Active Substance: RISANKIZUMAB-RZAA
     Indication: Crohn^s disease
     Route: 042
     Dates: start: 20240123

REACTIONS (4)
  - Systemic lupus erythematosus [Unknown]
  - Arthralgia [Unknown]
  - Renal function test abnormal [Unknown]
  - Inflammatory marker increased [Unknown]

NARRATIVE: CASE EVENT DATE: 20240101
